FAERS Safety Report 22137074 (Version 1)
Quarter: 2023Q1

REPORT INFORMATION
  Report Type: Report from Study
  Country: US (occurrence: US)
  Receive Date: 20230324
  Receipt Date: 20230324
  Transmission Date: 20230418
  Serious: Yes (Other)
  Sender: FDA-Public Use
  Company Number: US-GILEAD-2023-0621561

PATIENT
  Age: 47 Year
  Sex: Female

DRUGS (1)
  1. AZTREONAM LYSINE [Suspect]
     Active Substance: AZTREONAM LYSINE
     Indication: Cystic fibrosis lung
     Dosage: UNK, TID (INHALE 1 VIAL VIA PARI ALTERA NEBULIZER 3 TIMES A DAY FOR 28 DAYS ON AND 28 DAYS OFF)
     Route: 055
     Dates: start: 202007

REACTIONS (1)
  - Pneumonia [Not Recovered/Not Resolved]
